FAERS Safety Report 5063826-X (Version None)
Quarter: 2006Q3

REPORT INFORMATION
  Report Type: 
  Country: None (occurrence: None)
  Receive Date: 20060726
  Receipt Date: 20060726
  Transmission Date: 20061208
  Serious: Yes (Other)
  Sender: FDA-Public Use
  Company Number: None

PATIENT
  Age: 77 Year
  Sex: Male
  Weight: 102.5 kg

DRUGS (12)
  1. TRAVOPROST [Suspect]
  2. VERAPAMIL HCL [Concomitant]
  3. LEVOBUNOLOL HCL [Concomitant]
  4. LISINOPRIL [Concomitant]
  5. HYDROCHLOROTHIAZIDE [Concomitant]
  6. ROSIGLITAZONE MALEATE [Concomitant]
  7. OMEPRAZOLE [Concomitant]
  8. BRIMONIDINE TARTRATE [Concomitant]
  9. SIMVASTATIN [Concomitant]
  10. INSULIN SYRINGE [Concomitant]
  11. HUMULIN N [Concomitant]
  12. TRAMADOL HCL [Concomitant]

REACTIONS (1)
  - DERMATITIS [None]
